FAERS Safety Report 5080217-6 (Version None)
Quarter: 2006Q3

REPORT INFORMATION
  Report Type: 
  Country: None (occurrence: None)
  Receive Date: 20060810
  Receipt Date: 20060731
  Transmission Date: 20061208
  Serious: Yes (Other)
  Sender: FDA-Public Use
  Company Number: 228156

PATIENT
  Sex: Male

DRUGS (2)
  1. RITUXAN [Suspect]
     Indication: DIFFUSE LARGE B-CELL LYMPHOMA
     Dosage: 375 MG/M2, INTRAVENOUS
     Route: 042
  2. CHEMOTHERAPY NOS                (ANTINEOPLASTIC AGENT NOS) [Concomitant]

REACTIONS (2)
  - HEPATIC PAIN [None]
  - HEPATITIS C [None]
